FAERS Safety Report 22095372 (Version 1)
Quarter: 2023Q1

REPORT INFORMATION
  Report Type: Spontaneous
  Country: US (occurrence: US)
  Receive Date: 20230314
  Receipt Date: 20230314
  Transmission Date: 20230417
  Serious: Yes (Other)
  Sender: FDA-Public Use
  Company Number: US-PFIZER INC-2021861539

PATIENT
  Age: 72 Year
  Sex: Female

DRUGS (1)
  1. XELJANZ XR [Suspect]
     Active Substance: TOFACITINIB CITRATE
     Indication: Anxiety
     Dosage: 11 MG, DAILY
     Route: 048

REACTIONS (4)
  - Cataract [Unknown]
  - Off label use [Unknown]
  - Product prescribing issue [Unknown]
  - Gait disturbance [Unknown]
